FAERS Safety Report 7681616-6 (Version None)
Quarter: 2011Q3

REPORT INFORMATION
  Report Type: 
  Country: None (occurrence: None)
  Receive Date: 20110812
  Receipt Date: 20110805
  Transmission Date: 20111222
  Serious: Yes (Other)
  Sender: FDA-Public Use
  Company Number: PHEH2011US00863

PATIENT
  Sex: Male

DRUGS (1)
  1. TOBI [Suspect]
     Dosage: 300 MG, BID
     Dates: end: 20110513

REACTIONS (2)
  - DYSPNOEA [None]
  - PHARYNGEAL OEDEMA [None]
